FAERS Safety Report 7817298-X (Version None)
Quarter: 2011Q4

REPORT INFORMATION
  Report Type: 
  Country: None (occurrence: None)
  Receive Date: 20111017
  Receipt Date: 20111010
  Transmission Date: 20120403
  Serious: Yes (Other)
  Sender: FDA-Public Use
  Company Number: IE-PFIZER INC-2011241936

PATIENT
  Age: 30 Year
  Sex: Male

DRUGS (1)
  1. ECALTA [Suspect]
     Indication: FUNGAL INFECTION
     Dosage: 200 MG, UNK
     Route: 042
     Dates: start: 20110908, end: 20110908

REACTIONS (2)
  - DYSPNOEA [None]
  - FEELING HOT [None]
